FAERS Safety Report 4586029-1 (Version None)
Quarter: 2005Q1

REPORT INFORMATION
  Report Type: 
  Country: None (occurrence: None)
  Receive Date: 20050125
  Receipt Date: 20041012
  Transmission Date: 20050727
  Serious: Yes (Other)
  Sender: FDA-Public Use
  Company Number: USA040568792

PATIENT
  Age: 85 Year
  Sex: Female

DRUGS (7)
  1. EVISTA [Suspect]
     Indication: OSTEOPOROSIS
     Dosage: 60 MG DAY
  2. FOSAMAX [Concomitant]
  3. LEVOXYL [Concomitant]
  4. MULTI-VITAMIN [Concomitant]
  5. CALCIUM GLUCONATE [Concomitant]
  6. VITAMIN D [Concomitant]
  7. FORTEO [Suspect]
     Indication: OSTEOPOROSIS
     Dates: start: 20040101

REACTIONS (8)
  - BODY HEIGHT DECREASED [None]
  - DIZZINESS [None]
  - DYSPHAGIA [None]
  - IRRITABLE BOWEL SYNDROME [None]
  - MUSCULAR WEAKNESS [None]
  - PAIN IN EXTREMITY [None]
  - PELVIC FRACTURE [None]
  - SKIN DISCOLOURATION [None]
